FAERS Safety Report 4293958-5 (Version None)
Quarter: 2004Q1

REPORT INFORMATION
  Report Type: 
  Country: None (occurrence: None)
  Receive Date: 20040210
  Receipt Date: 20040112
  Transmission Date: 20041129
  Serious: Yes (Hospitalization)
  Sender: FDA-Public Use
  Company Number: 2003113130

PATIENT
  Age: 55 Year
  Sex: Female

DRUGS (13)
  1. NORVASC [Suspect]
     Indication: HYPERTENSION
     Dosage: 5 MG (DAILY), ORAL
     Route: 048
     Dates: start: 20010116
  2. CELEBREX [Suspect]
     Indication: ILL-DEFINED DISORDER
     Dosage: 200 MG (DAILY)
  3. LOTREL [Suspect]
     Indication: HYPERTENSION
     Dosage: 5/10 MILLIGRAMS (DAILY)
     Dates: start: 20010305, end: 20010312
  4. HYDROCHLOROTHIAZIDE [Suspect]
     Indication: HYPERTENSION
     Dosage: 25 MG (DAILY), ORAL
     Route: 048
     Dates: start: 20010327
  5. FOSINOPRIL SODIUM [Suspect]
     Indication: HYPERTENSION
     Dosage: 10 MG (DAILY)
     Dates: start: 20010419, end: 20011119
  6. LOSARTAN POTASSIUM (LOSARTAN POTASSIUM) [Suspect]
     Indication: HYPERTENSION
     Dosage: 50 MG (DAILY), ORAL
     Route: 048
     Dates: start: 20011119, end: 20011217
  7. ROFECOXIB [Concomitant]
  8. NABUMETONE [Concomitant]
  9. DYAZIDE [Concomitant]
  10. VALDECOXIB [Concomitant]
  11. SERTRALINE HCL [Concomitant]
  12. CAPTOPRIL [Concomitant]
  13. ZONISAMIDE (ZONISAMIDE) [Concomitant]

REACTIONS (27)
  - ANXIETY [None]
  - ASTHENIA [None]
  - BURSA DISORDER [None]
  - CHONDROMALACIA [None]
  - CYSTITIS ESCHERICHIA [None]
  - DEPRESSION [None]
  - DIZZINESS [None]
  - DRUG INEFFECTIVE [None]
  - DRY MOUTH [None]
  - EMOTIONAL DISTRESS [None]
  - FLAT AFFECT [None]
  - GAIT DISTURBANCE [None]
  - GOUT [None]
  - HEADACHE [None]
  - HYPERTENSION [None]
  - MULTIPLE SCLEROSIS [None]
  - NAUSEA [None]
  - NUCLEAR MAGNETIC RESONANCE IMAGING ABNORMAL [None]
  - OEDEMA PERIPHERAL [None]
  - OSSICLE DISORDER [None]
  - OSTEOARTHRITIS [None]
  - PAIN [None]
  - PARKINSON'S DISEASE [None]
  - PERIARTHRITIS [None]
  - PLATELET COUNT INCREASED [None]
  - TENDON INJURY [None]
  - VOMITING [None]
